FAERS Safety Report 12601383 (Version 2)
Quarter: 2016Q3

REPORT INFORMATION
  Report Type: Spontaneous
  Country: DE (occurrence: DE)
  Receive Date: 20160728
  Receipt Date: 20160825
  Transmission Date: 20161109
  Serious: Yes (Death, Life-Threatening, Hospitalization, Other)
  Sender: FDA-Public Use
  Company Number: DE-BRISTOL-MYERS SQUIBB COMPANY-BMS-2016-060440

PATIENT
  Age: 67 Year
  Sex: Male
  Weight: 111 kg

DRUGS (2)
  1. IPILIMUMAB [Suspect]
     Active Substance: IPILIMUMAB
     Indication: SMALL CELL LUNG CANCER
     Dosage: 1 MG/KG, UNK
     Route: 065
  2. NIVOLUMAB BMS [Suspect]
     Active Substance: NIVOLUMAB
     Indication: SMALL CELL LUNG CANCER
     Dosage: 3 MG/KG, UNK
     Route: 065

REACTIONS (14)
  - Coronary artery disease [Unknown]
  - Cardiomyopathy [Unknown]
  - Sepsis [Unknown]
  - Cardiac failure [Unknown]
  - Haemoptysis [Unknown]
  - Coronary artery insufficiency [Unknown]
  - Congestive cardiomyopathy [Unknown]
  - Arrhythmia [Unknown]
  - Cardioversion [Unknown]
  - Pneumonia [Unknown]
  - Product use issue [Unknown]
  - Malignant neoplasm progression [Fatal]
  - Pleural effusion [Unknown]
  - Aspiration pleural cavity [Unknown]

NARRATIVE: CASE EVENT DATE: 20160719
